FAERS Safety Report 17930744 (Version 6)
Quarter: 2020Q3

REPORT INFORMATION
  Report Type: Spontaneous
  Country: JP (occurrence: JP)
  Receive Date: 20200623
  Receipt Date: 20200709
  Transmission Date: 20201103
  Serious: Yes (Other)
  Sender: FDA-Public Use
  Company Number: NVSJ2020JP005979

PATIENT
  Age: 64 Year
  Sex: Male

DRUGS (2)
  1. NEORAL [Suspect]
     Active Substance: CYCLOSPORINE
     Indication: ULCERATIVE KERATITIS
     Dosage: 50 MG
     Route: 048
  2. TACROLIMUS. [Concomitant]
     Active Substance: TACROLIMUS
     Indication: ULCERATIVE KERATITIS
     Dosage: UNK
     Route: 047

REACTIONS (6)
  - Keratic precipitates [Recovering/Resolving]
  - Product use in unapproved indication [Unknown]
  - Corneal oedema [Unknown]
  - Corneal endotheliitis [Recovered/Resolved]
  - Corneal degeneration [Unknown]
  - Cytomegalovirus infection [Recovered/Resolved]
